FAERS Safety Report 4347292-5 (Version None)
Quarter: 2004Q1

REPORT INFORMATION
  Report Type: 
  Country: None (occurrence: None)
  Receive Date: 20040329
  Receipt Date: 20031230
  Transmission Date: 20041129
  Serious: No
  Sender: FDA-Public Use
  Company Number: USA031255600

PATIENT
  Age: 7 Year
  Sex: Male
  Weight: 17 kg

DRUGS (2)
  1. STRATTERA [Suspect]
     Indication: ATTENTION DEFICIT/HYPERACTIVITY DISORDER
     Dosage: 18 MG/IN THE MORNING
     Dates: start: 20031215
  2. RITALIN [Concomitant]

REACTIONS (4)
  - ABNORMAL BEHAVIOUR [None]
  - SOCIAL AVOIDANT BEHAVIOUR [None]
  - SOMNOLENCE [None]
  - WEIGHT DECREASED [None]
